FAERS Safety Report 16141013 (Version 1)
Quarter: 2019Q2

REPORT INFORMATION
  Report Type: Spontaneous
  Country: IT (occurrence: IT)
  Receive Date: 20190401
  Receipt Date: 20190401
  Transmission Date: 20190711
  Serious: Yes (Other)
  Sender: FDA-Public Use
  Company Number: PHHY2019IT070952

PATIENT
  Age: 37 Year
  Sex: Female

DRUGS (3)
  1. TACHIDOL [Suspect]
     Active Substance: ACETAMINOPHEN\CODEINE PHOSPHATE
     Indication: SUICIDE ATTEMPT
     Dosage: 5 DF, UNK (TOTAL)
     Route: 048
     Dates: start: 20181229, end: 20181229
  2. IBUPROFEN. [Suspect]
     Active Substance: IBUPROFEN
     Indication: SUICIDE ATTEMPT
     Dosage: 1800 MG, UNK (TOTAL)
     Route: 048
     Dates: start: 20181229, end: 20181229
  3. TACHIPIRINA [Suspect]
     Active Substance: ACETAMINOPHEN
     Indication: SUICIDE ATTEMPT
     Dosage: 5 DF, UNK (TOTAL)
     Route: 048
     Dates: start: 20181229, end: 20181229

REACTIONS (2)
  - Drug abuse [Recovering/Resolving]
  - Syncope [Recovering/Resolving]

NARRATIVE: CASE EVENT DATE: 20181229
